FAERS Safety Report 6524879-2 (Version None)
Quarter: 2009Q4

REPORT INFORMATION
  Report Type: 
  Country: None (occurrence: None)
  Receive Date: 20091228
  Receipt Date: 20091228
  Transmission Date: 20100525
  Serious: No
  Sender: FDA-Public Use
  Company Number: None

PATIENT
  Age: 49 Year
  Sex: Female
  Weight: 54.4316 kg

DRUGS (2)
  1. COLD REMEDY RAPID MELTS WITH VITAMIN C [Suspect]
     Dosage: BID - 2 DOSES
     Dates: start: 20091029, end: 20091029
  2. ATENOLOL [Concomitant]

REACTIONS (1)
  - AGEUSIA [None]
